FAERS Safety Report 4850897-6 (Version None)
Quarter: 2005Q4

REPORT INFORMATION
  Report Type: 
  Country: None (occurrence: None)
  Receive Date: 20051212
  Receipt Date: 20051017
  Transmission Date: 20060501
  Serious: Yes (Other)
  Sender: FDA-Public Use
  Company Number: FR-GLAXOSMITHKLINE-B0399350A

PATIENT
  Age: 29 Year
  Sex: Female
  Weight: 57 kg

DRUGS (1)
  1. DEROXAT [Suspect]
     Dosage: 1TAB PER DAY
     Route: 048
     Dates: start: 20031127

REACTIONS (1)
  - ABORTION SPONTANEOUS [None]
